FAERS Safety Report 9525240 (Version 1)
Quarter: 2013Q3

REPORT INFORMATION
  Report Type: Report from Study
  Country: SE (occurrence: SE)
  Receive Date: 20130916
  Receipt Date: 20130916
  Transmission Date: 20140515
  Serious: Yes (Hospitalization)
  Sender: FDA-Public Use
  Company Number: SE-SANOFI-AVENTIS-2013SA089489

PATIENT
  Sex: 0

DRUGS (4)
  1. ENOXAPARIN SODIUM [Suspect]
     Indication: SMALL CELL LUNG CANCER
     Route: 058
     Dates: start: 20120831, end: 20120902
  2. CARBOPLATIN [Suspect]
     Indication: SMALL CELL LUNG CANCER
     Route: 065
  3. ETOPOSIDE [Suspect]
     Indication: SMALL CELL LUNG CANCER
     Route: 065
  4. ESOMEPRAZOLE [Concomitant]

REACTIONS (1)
  - Haemoglobin decreased [Recovered/Resolved]
